FAERS Safety Report 6136582-1 (Version None)
Quarter: 2009Q1

REPORT INFORMATION
  Report Type: 
  Country: None (occurrence: None)
  Receive Date: 20090330
  Receipt Date: 20090324
  Transmission Date: 20090719
  Serious: Yes (Life-Threatening, Hospitalization, Other)
  Sender: FDA-Public Use
  Company Number: US-PFIZER INC-2008099926

PATIENT
  Sex: Male
  Weight: 88.4 kg

DRUGS (9)
  1. BLINDED *PLACEBO [Suspect]
     Indication: PROSTATE CANCER
     Dosage: 37.5 MG, 1X/DAY
     Route: 048
     Dates: start: 20081024, end: 20081125
  2. BLINDED SUNITINIB MALATE [Suspect]
     Indication: PROSTATE CANCER
     Dosage: 37.5 MG, 1X/DAY
     Route: 048
     Dates: start: 20081024, end: 20081125
  3. PREDNISONE [Suspect]
     Indication: PROSTATE CANCER
     Dosage: 5 MG, 2X/DAY
     Route: 048
     Dates: start: 20081024, end: 20081128
  4. ALLOPURINOL [Concomitant]
     Indication: NEPHROLITHIASIS
     Route: 048
     Dates: start: 19780101
  5. LUPRON [Concomitant]
     Indication: PROSTATE CANCER
     Route: 050
     Dates: start: 20070219
  6. ZOMETA [Concomitant]
     Indication: BONE DISORDER
     Route: 042
     Dates: start: 20080222
  7. GLUCOTROL [Concomitant]
     Indication: DIABETES MELLITUS
     Route: 048
     Dates: start: 19980101
  8. SODIUM BICARBONATE [Concomitant]
     Indication: NEPHROLITHIASIS
     Route: 048
     Dates: start: 19780101
  9. GAS-X [Concomitant]
     Indication: FLATULENCE
     Route: 048
     Dates: start: 20081121

REACTIONS (1)
  - INTESTINAL ISCHAEMIA [None]
